FAERS Safety Report 8285260-1 (Version None)
Quarter: 2012Q2

REPORT INFORMATION
  Report Type: 
  Country: None (occurrence: None)
  Receive Date: 20120413
  Receipt Date: 20120228
  Transmission Date: 20120825
  Serious: No
  Sender: FDA-Public Use
  Company Number: US-ASTRAZENECA-2012SE13980

PATIENT
  Age: 62 Year
  Sex: Female
  Weight: 65.8 kg

DRUGS (3)
  1. NEXIUM [Suspect]
     Indication: GASTRITIS
     Dosage: TWO TIMES A DAY
     Route: 048
  2. CHOLESTEROL MEDICATIONS [Concomitant]
  3. TOPROL-XL [Suspect]
     Route: 048

REACTIONS (2)
  - OFF LABEL USE [None]
  - COELIAC DISEASE [None]
